FAERS Safety Report 23223373 (Version 1)
Quarter: 2023Q4

REPORT INFORMATION
  Report Type: Spontaneous
  Country: CA (occurrence: CA)
  Receive Date: 20231123
  Receipt Date: 20231123
  Transmission Date: 20240110
  Serious: Yes (Other)
  Sender: FDA-Public Use
  Company Number: CA-CELLTRION INC.-2018CA022521

PATIENT

DRUGS (55)
  1. INFLECTRA [Suspect]
     Active Substance: INFLIXIMAB-DYYB
     Indication: Colitis ulcerative
     Dosage: 300 MG, AT 0, 2, 6 WEEKS THEN EVERY 8 WEEKS
     Route: 042
     Dates: start: 20180821
  2. INFLECTRA [Suspect]
     Active Substance: INFLIXIMAB-DYYB
     Dosage: 300 MG, AT 0, 2, 6 WEEKS THEN EVERY 8 WEEKS
     Route: 042
     Dates: start: 20180905
  3. INFLECTRA [Suspect]
     Active Substance: INFLIXIMAB-DYYB
     Dosage: 300 MG, AT 0, 2, 6 WEEKS THEN EVERY 8 WEEKS
     Route: 042
     Dates: start: 20181002
  4. INFLECTRA [Suspect]
     Active Substance: INFLIXIMAB-DYYB
     Dosage: 300 MG, AT 0, 2, 6 WEEKS THEN EVERY 8 WEEKS
     Route: 042
     Dates: start: 20181127, end: 20181127
  5. INFLECTRA [Suspect]
     Active Substance: INFLIXIMAB-DYYB
     Dosage: 400 MG, EVERY 4 WEEKS, THEN EVERY 6 WEEKS
     Route: 042
     Dates: start: 20190122
  6. INFLECTRA [Suspect]
     Active Substance: INFLIXIMAB-DYYB
     Dosage: 400 MG, EVERY 4 WEEKS, THEN EVERY 6 WEEKS
     Route: 042
     Dates: start: 20190219
  7. INFLECTRA [Suspect]
     Active Substance: INFLIXIMAB-DYYB
     Dosage: 400 MG, EVERY 4 WEEKS, THEN EVERY 6 WEEKS
     Route: 042
     Dates: start: 20190401
  8. INFLECTRA [Suspect]
     Active Substance: INFLIXIMAB-DYYB
     Dosage: 400 MG, EVERY 4 WEEKS, THEN EVERY 6 WEEKS
     Route: 042
     Dates: start: 20190624, end: 20190624
  9. INFLECTRA [Suspect]
     Active Substance: INFLIXIMAB-DYYB
     Dosage: 400 MG, EVERY 4 WEEKS, THEN EVERY 6 WEEKS
     Route: 042
     Dates: start: 20190807
  10. INFLECTRA [Suspect]
     Active Substance: INFLIXIMAB-DYYB
     Dosage: 400 MG, EVERY 4 WEEKS, THEN EVERY 6 WEEKS
     Route: 042
     Dates: start: 20190917
  11. INFLECTRA [Suspect]
     Active Substance: INFLIXIMAB-DYYB
     Dosage: 400 MG, EVERY 4 WEEKS, THEN EVERY 6 WEEKS
     Route: 042
     Dates: start: 20191028
  12. INFLECTRA [Suspect]
     Active Substance: INFLIXIMAB-DYYB
     Dosage: 400 MG, EVERY 4 WEEKS, THEN EVERY 6 WEEKS
     Route: 042
     Dates: start: 20191209
  13. INFLECTRA [Suspect]
     Active Substance: INFLIXIMAB-DYYB
     Dosage: 400 MG, EVERY 4 WEEKS, THEN EVERY 6 WEEKS
     Route: 042
     Dates: start: 20200129
  14. INFLECTRA [Suspect]
     Active Substance: INFLIXIMAB-DYYB
     Dosage: 400 MG, EVERY 4 WEEKS, THEN EVERY 6 WEEKS
     Route: 042
     Dates: start: 20200303
  15. INFLECTRA [Suspect]
     Active Substance: INFLIXIMAB-DYYB
     Dosage: 400 MG, EVERY 4 WEEKS, THEN EVERY 6 WEEKS
     Route: 042
     Dates: start: 20200414
  16. INFLECTRA [Suspect]
     Active Substance: INFLIXIMAB-DYYB
     Dosage: 400 MG, EVERY 4 WEEKS, THEN EVERY 6 WEEKS
     Route: 042
     Dates: start: 20200525
  17. INFLECTRA [Suspect]
     Active Substance: INFLIXIMAB-DYYB
     Dosage: 400 MG, EVERY 4 WEEKS, THEN EVERY 6 WEEKS
     Route: 042
     Dates: start: 20200706, end: 20200706
  18. INFLECTRA [Suspect]
     Active Substance: INFLIXIMAB-DYYB
     Dosage: 400 MG, EVERY 4 WEEKS, THEN EVERY 6 WEEKS
     Route: 042
     Dates: start: 20200817, end: 20200817
  19. INFLECTRA [Suspect]
     Active Substance: INFLIXIMAB-DYYB
     Dosage: 400 MG, EVERY 4 WEEKS, THEN EVERY 6 WEEKS
     Route: 042
     Dates: start: 20200928, end: 20200928
  20. INFLECTRA [Suspect]
     Active Substance: INFLIXIMAB-DYYB
     Dosage: 400 MG, EVERY 4 WEEKS, THEN EVERY 6 WEEKS
     Route: 042
     Dates: start: 20201109, end: 20201109
  21. INFLECTRA [Suspect]
     Active Substance: INFLIXIMAB-DYYB
     Dosage: 400 MG, EVERY 4 WEEKS, THEN EVERY 6 WEEKS
     Route: 042
     Dates: start: 20201109, end: 20201109
  22. INFLECTRA [Suspect]
     Active Substance: INFLIXIMAB-DYYB
     Dosage: 400 MG, EVERY 4 WEEKS, THEN EVERY 6 WEEKS
     Route: 042
     Dates: start: 20201223, end: 20201223
  23. INFLECTRA [Suspect]
     Active Substance: INFLIXIMAB-DYYB
     Dosage: 400 MG, EVERY 4 WEEKS, THEN EVERY 6 WEEKS
     Route: 042
     Dates: start: 20210201
  24. INFLECTRA [Suspect]
     Active Substance: INFLIXIMAB-DYYB
     Dosage: 400 MG, EVERY 4 WEEKS, THEN EVERY 6 WEEKS
     Route: 042
     Dates: start: 20210316
  25. INFLECTRA [Suspect]
     Active Substance: INFLIXIMAB-DYYB
     Dosage: 400 MG, EVERY 4 WEEKS, THEN EVERY 6 WEEKS
     Route: 042
     Dates: start: 20210427
  26. INFLECTRA [Suspect]
     Active Substance: INFLIXIMAB-DYYB
     Dosage: 400 MG, EVERY 4 WEEKS, THEN EVERY 6 WEEKS
     Route: 042
     Dates: start: 20210610, end: 20210610
  27. INFLECTRA [Suspect]
     Active Substance: INFLIXIMAB-DYYB
     Dosage: 400 MG, EVERY 4 WEEKS, THEN EVERY 6 WEEKS
     Route: 042
     Dates: start: 20210719, end: 20210719
  28. INFLECTRA [Suspect]
     Active Substance: INFLIXIMAB-DYYB
     Dosage: 400 MG EVERY 4 WEEKS, THEN EVERY 6 WEEKS
     Route: 042
     Dates: start: 20210831
  29. INFLECTRA [Suspect]
     Active Substance: INFLIXIMAB-DYYB
     Dosage: 400 MG EVERY 4 WEEKS, THEN EVERY 6 WEEKS
     Route: 042
     Dates: start: 20211012
  30. INFLECTRA [Suspect]
     Active Substance: INFLIXIMAB-DYYB
     Dosage: 400 MG EVERY 4 WEEKS, THEN EVERY 6 WEEKS
     Route: 042
     Dates: start: 20211124
  31. INFLECTRA [Suspect]
     Active Substance: INFLIXIMAB-DYYB
     Dosage: 400 MG EVERY 4 WEEKS, THEN EVERY 6 WEEKS
     Route: 042
     Dates: start: 20220107
  32. INFLECTRA [Suspect]
     Active Substance: INFLIXIMAB-DYYB
     Dosage: 400 MG EVERY 4 WEEKS, THEN EVERY 6 WEEKS
     Route: 042
     Dates: start: 20220513
  33. INFLECTRA [Suspect]
     Active Substance: INFLIXIMAB-DYYB
     Dosage: 400 MG EVERY 4 WEEKS, THEN EVERY 6 WEEKS
     Route: 042
     Dates: start: 20220624
  34. INFLECTRA [Suspect]
     Active Substance: INFLIXIMAB-DYYB
     Dosage: 400 MG EVERY 4 WEEKS, THEN EVERY 6 WEEKS
     Route: 042
     Dates: start: 20220809
  35. INFLECTRA [Suspect]
     Active Substance: INFLIXIMAB-DYYB
     Dosage: 400 MG EVERY 4 WEEKS, THEN EVERY 6 WEEKS
     Route: 042
     Dates: start: 20220920
  36. INFLECTRA [Suspect]
     Active Substance: INFLIXIMAB-DYYB
     Dosage: 400 MG EVERY 4 WEEKS, THEN EVERY 6 WEEKS
     Route: 042
     Dates: start: 20230307
  37. INFLECTRA [Suspect]
     Active Substance: INFLIXIMAB-DYYB
     Dosage: 400 MG EVERY 6 WEEKS
     Route: 042
     Dates: start: 20230418
  38. INFLECTRA [Suspect]
     Active Substance: INFLIXIMAB-DYYB
     Dosage: 400 MG EVERY 6 WEEKS
     Route: 042
     Dates: start: 20230529
  39. INFLECTRA [Suspect]
     Active Substance: INFLIXIMAB-DYYB
     Dosage: 400 MG EVERY 6 WEEKS
     Route: 042
     Dates: start: 20230710
  40. INFLECTRA [Suspect]
     Active Substance: INFLIXIMAB-DYYB
     Dosage: 400 MG EVERY 6 WEEKS
     Route: 042
     Dates: start: 20230821
  41. INFLECTRA [Suspect]
     Active Substance: INFLIXIMAB-DYYB
     Dosage: 400 MG EVERY 6 WEEKS
     Route: 042
     Dates: start: 20231003
  42. INFLECTRA [Suspect]
     Active Substance: INFLIXIMAB-DYYB
     Dosage: 400 MG, EVERY 6 WEEK
     Route: 042
     Dates: start: 20231115
  43. ACETAMINOPHEN [Concomitant]
     Active Substance: ACETAMINOPHEN
     Indication: Premedication
     Dosage: 650 MG
     Route: 065
     Dates: start: 20200706, end: 20200706
  44. AZATHIOPRINE [Concomitant]
     Active Substance: AZATHIOPRINE
     Dosage: 50 MG, ONCE DAILY
     Route: 048
  45. AZATHIOPRINE [Concomitant]
     Active Substance: AZATHIOPRINE
     Dosage: 50 MG, 1X/DAY
     Route: 065
  46. DIPHENHYDRAMINE [Concomitant]
     Active Substance: DIPHENHYDRAMINE
     Indication: Premedication
     Dosage: 50 MG
     Route: 065
     Dates: start: 20200706, end: 20200706
  47. MESALAMINE [Concomitant]
     Active Substance: MESALAMINE
     Dosage: 1.2 G, UNK
  48. MESALAMINE [Concomitant]
     Active Substance: MESALAMINE
     Dosage: UNK
  49. MESALAMINE [Concomitant]
     Active Substance: MESALAMINE
     Dosage: 1 DF, DOSAGE INFORMATION FOR MEVAZANT
     Route: 065
  50. PREDNISONE [Concomitant]
     Active Substance: PREDNISONE
     Dosage: 20 MG, DAILY
     Route: 048
  51. PREDNISONE [Concomitant]
     Active Substance: PREDNISONE
     Dosage: 20 MG, ONCE DAILY (TAPERING)
     Route: 048
  52. PREDNISONE [Concomitant]
     Active Substance: PREDNISONE
     Dosage: 1 DF,DOSAGE INFORMATION FOR MEVAZANT
     Route: 065
  53. PREDNISONE [Concomitant]
     Active Substance: PREDNISONE
     Dosage: 20 MG,TAPERING
     Route: 048
  54. SALOFALK [Concomitant]
     Indication: Enema administration
     Dosage: UNK
  55. SALOFALK [Concomitant]
     Dosage: 1 DF, DOSAGE INFORMATION NOT AVAILABLE FOR SALOFALK
     Route: 065

REACTIONS (23)
  - Migraine [Recovered/Resolved]
  - Therapeutic response shortened [Unknown]
  - Drug level above therapeutic [Not Recovered/Not Resolved]
  - Condition aggravated [Recovering/Resolving]
  - Cough [Unknown]
  - Ear pain [Recovering/Resolving]
  - Ear discomfort [Recovering/Resolving]
  - Nasopharyngitis [Unknown]
  - Influenza [Unknown]
  - Infusion site discomfort [Recovered/Resolved]
  - Haemoglobin decreased [Unknown]
  - Red cell distribution width increased [Unknown]
  - Alanine aminotransferase decreased [Unknown]
  - Depressive symptom [Unknown]
  - Cervical dysplasia [Unknown]
  - Weight increased [Recovering/Resolving]
  - Blood pressure diastolic decreased [Unknown]
  - Chronic sinusitis [Unknown]
  - Eye allergy [Not Recovered/Not Resolved]
  - Eye disorder [Unknown]
  - Off label use [Unknown]
  - Off label use [Unknown]
  - Intentional product use issue [Unknown]

NARRATIVE: CASE EVENT DATE: 20190122
